FAERS Safety Report 17676565 (Version 1)
Quarter: 2020Q2

REPORT INFORMATION
  Report Type: Spontaneous
  Country: FR (occurrence: FR)
  Receive Date: 20200416
  Receipt Date: 20200416
  Transmission Date: 20200714
  Serious: Yes (Hospitalization)
  Sender: FDA-Public Use
  Company Number: FR-MYLANLABS-2020M1037821

PATIENT
  Age: 79 Year
  Sex: Male
  Weight: 81 kg

DRUGS (1)
  1. IBUPROFEN MYLAN [Suspect]
     Active Substance: IBUPROFEN
     Indication: NASOPHARYNGITIS
     Dosage: 1200 MILLIGRAM, QD
     Route: 048
     Dates: start: 20200102, end: 20200105

REACTIONS (1)
  - Beta haemolytic streptococcal infection [Recovered/Resolved]

NARRATIVE: CASE EVENT DATE: 20200105
